FAERS Safety Report 8663800 (Version 2)
Quarter: 2012Q4

REPORT INFORMATION
  Report Type: 
  Country: CH (occurrence: CH)
  Receive Date: 20120713
  Receipt Date: 20121001
  Transmission Date: 20130627
  Serious: Yes (Other)
  Sender: FDA-Public Use
  Company Number: CH-PFIZER INC-2012165687

PATIENT
  Age: 53 Year
  Sex: Female
  Weight: 45 kg

DRUGS (1)
  1. SORTIS [Suspect]
     Dosage: 20 mg, 1x/day
     Route: 048
     Dates: start: 20120414, end: 20120429

REACTIONS (4)
  - Delirium [Unknown]
  - Muscle disorder [Unknown]
  - Sleep disorder [Recovered/Resolved]
  - Abnormal dreams [Recovered/Resolved]
